FAERS Safety Report 18616937 (Version 1)
Quarter: 2020Q4

REPORT INFORMATION
  Report Type: Spontaneous
  Country: US (occurrence: US)
  Receive Date: 20201215
  Receipt Date: 20201215
  Transmission Date: 20210114
  Serious: Yes (Hospitalization, Other)
  Sender: FDA-Public Use
  Company Number: US-ASTELLAS-2020US042094

PATIENT
  Age: 13 Year
  Sex: Male

DRUGS (4)
  1. CIDOFOVIR. [Suspect]
     Active Substance: CIDOFOVIR
     Indication: ADENOVIRUS INFECTION
     Route: 042
  2. TACROLIMUS. [Suspect]
     Active Substance: TACROLIMUS
     Indication: RENAL AND LIVER TRANSPLANT
     Dosage: RANGED FROM 2MG TO 7MG BID (WAS ON 6 MG AT THE TIME OF ADMISSION), TWICE DAILY
     Route: 048
     Dates: start: 20170812
  3. MYCOPHENOLATE MOFETIL. [Suspect]
     Active Substance: MYCOPHENOLATE MOFETIL
     Indication: RENAL AND LIVER TRANSPLANT
     Dosage: 400 MG, TWICE DAILY (329 MG/M2)
     Route: 065
     Dates: start: 20170812
  4. PREDNISONE. [Suspect]
     Active Substance: PREDNISONE
     Indication: RENAL AND LIVER TRANSPLANT
     Route: 065
     Dates: start: 20170812

REACTIONS (5)
  - Sepsis [Recovered/Resolved]
  - Acute kidney injury [Recovered/Resolved]
  - Febrile neutropenia [Recovered/Resolved]
  - Adenovirus infection [Recovered/Resolved]
  - Central nervous system vasculitis [Recovered/Resolved]

NARRATIVE: CASE EVENT DATE: 20181226
